FAERS Safety Report 22384192 (Version 3)
Quarter: 2024Q3

REPORT INFORMATION
  Report Type: Spontaneous
  Country: US (occurrence: None)
  Receive Date: 20230530
  Receipt Date: 20240906
  Transmission Date: 20241017
  Serious: No
  Sender: DOMPE FARMACEUTICI
  Company Number: US-FARMAPROD-202305-1498

PATIENT
  Age: 75 Year
  Sex: Male
  Weight: 83.91 kg

DRUGS (22)
  1. OXERVATE [Suspect]
     Active Substance: CENEGERMIN-BKBJ
     Indication: Neurotrophic keratopathy
     Route: 047
     Dates: start: 20221110, end: 202301
  2. OXERVATE [Suspect]
     Active Substance: CENEGERMIN-BKBJ
     Route: 047
     Dates: start: 20230417, end: 20230613
  3. OXERVATE [Suspect]
     Active Substance: CENEGERMIN-BKBJ
     Route: 047
     Dates: start: 20230613, end: 20230807
  4. OXERVATE [Suspect]
     Active Substance: CENEGERMIN-BKBJ
     Route: 047
     Dates: start: 20230807, end: 20231002
  5. OXERVATE [Suspect]
     Active Substance: CENEGERMIN-BKBJ
     Route: 047
     Dates: start: 20231003, end: 20231128
  6. OXERVATE [Suspect]
     Active Substance: CENEGERMIN-BKBJ
     Route: 047
     Dates: start: 20231128, end: 20240123
  7. OXERVATE [Suspect]
     Active Substance: CENEGERMIN-BKBJ
     Route: 047
     Dates: start: 20240123
  8. OXERVATE [Suspect]
     Active Substance: CENEGERMIN-BKBJ
  9. VITAMINS [Concomitant]
     Active Substance: VITAMINS
  10. AMLODIPINE BESYLATE [Concomitant]
     Active Substance: AMLODIPINE BESYLATE
  11. LISINOPRIL [Concomitant]
     Active Substance: LISINOPRIL
  12. EZETIMIBE\SIMVASTATIN [Concomitant]
     Active Substance: EZETIMIBE\SIMVASTATIN
  13. LEVOTHYROXINE SODIUM [Concomitant]
     Active Substance: LEVOTHYROXINE SODIUM
  14. METOPROLOL SUCCINATE [Concomitant]
     Active Substance: METOPROLOL SUCCINATE
  15. CITALOPRAM [Concomitant]
     Active Substance: CITALOPRAM\CITALOPRAM HYDROBROMIDE
  16. XANAX [Concomitant]
     Active Substance: ALPRAZOLAM
  17. BUPROPION HYDROCHLORIDE [Concomitant]
     Active Substance: BUPROPION HYDROCHLORIDE
  18. OLANZAPINE [Concomitant]
     Active Substance: OLANZAPINE
  19. AMITRIPTYLINE HYDROCHLORIDE [Concomitant]
     Active Substance: AMITRIPTYLINE HYDROCHLORIDE
  20. ARTIFICIAL TEARS [Concomitant]
  21. ILEVRO [Concomitant]
     Active Substance: NEPAFENAC
  22. DORZOLAMIDE [Concomitant]
     Active Substance: DORZOLAMIDE

REACTIONS (5)
  - Corneal transplant [Recovering/Resolving]
  - Off label use [Recovered/Resolved]
  - Hypoacusis [Unknown]
  - Memory impairment [Unknown]
  - Underdose [Recovered/Resolved]

NARRATIVE: CASE EVENT DATE: 20230516
